FAERS Safety Report 4923946-4 (Version None)
Quarter: 2006Q1

REPORT INFORMATION
  Report Type: 
  Country: None (occurrence: None)
  Receive Date: 20060224
  Receipt Date: 20060224
  Transmission Date: 20060701
  Serious: Yes (Other)
  Sender: FDA-Public Use
  Company Number: None

PATIENT
  Age: 75 Year
  Sex: Female
  Weight: 56.6996 kg

DRUGS (5)
  1. GLIMEPIRIDE [Suspect]
     Indication: DIABETES MELLITUS
     Dosage: TAKE 1 TABLET TWICE A DAY/ORAL
     Route: 048
     Dates: start: 20051215, end: 20060215
  2. GLIMEPIRIDE [Suspect]
     Indication: HYPERGLYCAEMIA
     Dosage: TAKE 1 TABLET TWICE A DAY/ORAL
     Route: 048
     Dates: start: 20051215, end: 20060215
  3. LISINOPRIL AND HYDROCHLOROTHIAZIDE [Concomitant]
  4. LIPITOR [Concomitant]
  5. NEXIUM [Concomitant]

REACTIONS (2)
  - BLOOD GLUCOSE INCREASED [None]
  - PHARMACEUTICAL PRODUCT COMPLAINT [None]
